FAERS Safety Report 25158897 (Version 1)
Quarter: 2025Q2

REPORT INFORMATION
  Report Type: Spontaneous
  Country: CN (occurrence: CN)
  Receive Date: 20250404
  Receipt Date: 20250404
  Transmission Date: 20250717
  Serious: Yes (Other)
  Sender: SANDOZ
  Company Number: CN-002147023-NVSC2025CN054564

PATIENT
  Age: 6 Year
  Sex: Male

DRUGS (3)
  1. TOBRADEX [Suspect]
     Active Substance: DEXAMETHASONE\TOBRAMYCIN
     Indication: Keratitis
     Dosage: 10 MG, TID (OS)
     Route: 047
     Dates: start: 20250310, end: 20250319
  2. TOBRADEX [Suspect]
     Active Substance: DEXAMETHASONE\TOBRAMYCIN
     Route: 065
  3. SODIUM HYALURONATE [Concomitant]
     Active Substance: HYALURONATE SODIUM
     Indication: Symptomatic treatment
     Dosage: UNK UNK, QID (OS)
     Route: 065

REACTIONS (4)
  - Xerophthalmia [Unknown]
  - Allergic keratitis [Unknown]
  - Refraction disorder [Unknown]
  - Intraocular pressure increased [Recovering/Resolving]

NARRATIVE: CASE EVENT DATE: 20250319
